FAERS Safety Report 14505687 (Version 1)
Quarter: 2018Q1

REPORT INFORMATION
  Report Type: Spontaneous
  Country: US (occurrence: US)
  Receive Date: 20180208
  Receipt Date: 20180208
  Transmission Date: 20180509
  Serious: Yes (Hospitalization, Other)
  Sender: FDA-Public Use
  Company Number: US-GLENMARK PHARMACEUTICALS-2018GMK031302

PATIENT
  Age: 75 Year
  Sex: Male

DRUGS (9)
  1. IMIPRAMINE [Suspect]
     Active Substance: IMIPRAMINE
     Indication: PAIN
     Dosage: Q8H,ANALGESIC COMPOUNDED TOPICAL CREAM, APPLYING THE CREAM OVER HIS ENTIRE BACK AND LEFT LOWER EXTRE
     Route: 061
  2. CLONIDINE                          /00171102/ [Suspect]
     Active Substance: CLONIDINE
     Indication: PAIN
     Dosage: UNK, Q8H,APPLYING THE CREAM OVER HIS ENTIRE BACK AND LEFT LOWER EXTREM...
     Route: 061
  3. TELMISARTAN. [Concomitant]
     Active Substance: TELMISARTAN
     Indication: PRODUCT USED FOR UNKNOWN INDICATION
     Dosage: 40 MG, QD
     Route: 065
  4. MEFENAMIC ACID. [Suspect]
     Active Substance: MEFENAMIC ACID
     Indication: PAIN
     Dosage: Q8H,ANALGESIC COMPOUNDED TOPICAL CREAM, APPLYING THE CREAM OVER HIS ENTIRE BACK AND LEFT LOWER EXTRE
     Route: 061
  5. PRAVASTATIN. [Concomitant]
     Active Substance: PRAVASTATIN
     Indication: PRODUCT USED FOR UNKNOWN INDICATION
     Dosage: 40 MG, QD, NIGHTLY
     Route: 065
  6. KETAMINE                           /00171202/ [Suspect]
     Active Substance: KETAMINE
     Indication: PAIN
     Dosage: UNK,Q8H, APPLYING THE CREAM OVER HIS ENTIRE BACK AND LEFT LOWER EXTRE
     Route: 061
  7. ACETAMINOPHEN AND CODEINE [Concomitant]
     Active Substance: ACETAMINOPHEN\CODEINE PHOSPHATE
     Indication: PAIN
     Dosage: EVERY 4 HOURS, PRN
     Route: 065
  8. GABAPENTIN. [Suspect]
     Active Substance: GABAPENTIN
     Indication: PAIN
     Dosage: Q8H, APPLYING THE CREAM OVER HIS ENTIRE BACK AND LEFT LOWER EXTREM
     Route: 061
  9. LIDOCAINE. [Suspect]
     Active Substance: LIDOCAINE
     Indication: PAIN
     Dosage: Q8H,ANALGESIC COMPOUNDED TOPICAL CREAM, APPLYING THE CREAM OVER HIS ENTIRE BACK AND LEFT LOWER EXTRE
     Route: 061

REACTIONS (1)
  - Delirium [Recovered/Resolved]
